FAERS Safety Report 24264751 (Version 2)
Quarter: 2024Q3

REPORT INFORMATION
  Report Type: Spontaneous
  Country: JP (occurrence: None)
  Receive Date: 20240829
  Receipt Date: 20240903
  Transmission Date: 20241017
  Serious: Yes (Other)
  Sender: ASTRAZENECA
  Company Number: 2024A193857

PATIENT
  Sex: Male

DRUGS (1)
  1. IRESSA [Suspect]
     Active Substance: GEFITINIB
     Indication: Lung neoplasm malignant
     Route: 048

REACTIONS (17)
  - Pleural effusion [Unknown]
  - Tumour marker increased [Unknown]
  - Dysstasia [Unknown]
  - Hypersensitivity [Unknown]
  - Rhinorrhoea [Unknown]
  - Epistaxis [Unknown]
  - Muscular weakness [Unknown]
  - Fall [Unknown]
  - Skin haemorrhage [Unknown]
  - Skin atrophy [Unknown]
  - Foreign body in skin or subcutaneous tissue [Unknown]
  - Sneezing [Unknown]
  - Productive cough [Unknown]
  - Haemorrhage [Unknown]
  - Scab [Unknown]
  - Pain [Unknown]
  - Dry skin [Unknown]

NARRATIVE: CASE EVENT DATE: 20240101
